FAERS Safety Report 9912684 (Version 1)
Quarter: 2014Q1

REPORT INFORMATION
  Report Type: Spontaneous
  Country: HU (occurrence: None)
  Receive Date: 20140214
  Receipt Date: 20140214
  Transmission Date: 20141002
  Serious: Yes (Other)
  Sender: FDA-Public Use
  Company Number: 2014AP001066

PATIENT
  Age: 75 Year
  Sex: Female

DRUGS (2)
  1. ALENDRONIC ACID (ALENDRONIC ACID) [Suspect]
     Indication: OSTEOPOROSIS
     Route: 048
     Dates: start: 201309, end: 20140125
  2. CALCICHEW D3 [Suspect]
     Indication: OSTEOPOROSIS
     Route: 048
     Dates: start: 201309, end: 20140125

REACTIONS (8)
  - Drug ineffective [None]
  - Constipation [None]
  - Haemorrhoids [None]
  - Pain in extremity [None]
  - Arthralgia [None]
  - Glossodynia [None]
  - Abasia [None]
  - Dysstasia [None]
